FAERS Safety Report 4907091-X (Version None)
Quarter: 2006Q1

REPORT INFORMATION
  Report Type: 
  Country: None (occurrence: None)
  Receive Date: 20060206
  Receipt Date: 20060123
  Transmission Date: 20060701
  Serious: Yes (Hospitalization)
  Sender: FDA-Public Use
  Company Number: 2006007886

PATIENT
  Age: 31 Year
  Sex: Male

DRUGS (1)
  1. SOMAVERT [Suspect]
     Indication: ILL-DEFINED DISORDER
     Dosage: 15MG (DAILY)
     Dates: start: 20050214

REACTIONS (2)
  - CHOLECYSTITIS CHRONIC [None]
  - CHOLELITHIASIS [None]
